FAERS Safety Report 4414021-6 (Version None)
Quarter: 2004Q3

REPORT INFORMATION
  Report Type: 
  Country: None (occurrence: None)
  Receive Date: 20040803
  Receipt Date: 20040715
  Transmission Date: 20050211
  Serious: Yes (Hospitalization)
  Sender: FDA-Public Use
  Company Number: 2004US002185

PATIENT
  Age: 50 Year
  Sex: Female

DRUGS (15)
  1. ZOFRAN [Suspect]
     Indication: PROPHYLAXIS OF NAUSEA AND VOMITING
     Dosage: 20MG SINGLE DOSE
     Route: 042
     Dates: start: 20040701, end: 20040701
  2. DYAZIDE [Concomitant]
     Indication: HYPERTENSION
     Dosage: 1TAB PER DAY
  3. ADVIL [Concomitant]
     Indication: HEADACHE
  4. NORVASC [Concomitant]
     Indication: HYPERTENSION
     Dosage: 10MG PER DAY
  5. ADRIAMYCIN PFS [Concomitant]
     Indication: BREAST CANCER
     Dosage: 70MG EVERY TWO WEEKS
  6. TAXOTERE [Concomitant]
     Indication: BREAST CANCER
     Dosage: 150MG EVERY TWO WEEKS
  7. ALOXI [Concomitant]
     Indication: PROPHYLAXIS OF NAUSEA AND VOMITING
     Route: 042
  8. DIPHENHYDRAMINE HCL [Concomitant]
     Indication: PREMEDICATION
  9. RANITIDINE [Concomitant]
     Indication: PREMEDICATION
  10. DECADRON [Concomitant]
     Indication: PREMEDICATION
  11. SODIUM CHLORIDE 0.9% [Concomitant]
     Indication: DEHYDRATION
  12. ZYRTEC [Concomitant]
     Dosage: 1TAB PER DAY
  13. CALCIUM [Concomitant]
     Dosage: 1500MG PER DAY
  14. VITAMIN E [Concomitant]
  15. MULTIVITAMIN [Concomitant]

REACTIONS (17)
  - ASTHENIA [None]
  - BLOOD PRESSURE SYSTOLIC INCREASED [None]
  - DIASTOLIC DYSFUNCTION [None]
  - HAEMANGIOMA [None]
  - HEART RATE INCREASED [None]
  - HYPOAESTHESIA [None]
  - MALFORMATION VENOUS [None]
  - MIGRAINE [None]
  - MITRAL VALVE INCOMPETENCE [None]
  - MUSCLE TIGHTNESS [None]
  - MUSCULOSKELETAL DISCOMFORT [None]
  - OEDEMA PERIPHERAL [None]
  - PARAESTHESIA [None]
  - PARAESTHESIA ORAL [None]
  - PARALYSIS FLACCID [None]
  - TRANSIENT ISCHAEMIC ATTACK [None]
  - VISUAL DISTURBANCE [None]
